FAERS Safety Report 11784721 (Version 2)
Quarter: 2015Q4

REPORT INFORMATION
  Report Type: Report from Study
  Country: US (occurrence: US)
  Receive Date: 20151130
  Receipt Date: 20151214
  Transmission Date: 20160305
  Serious: No
  Sender: FDA-Public Use
  Company Number: US-ASTRAZENECA-2015SE53729

PATIENT
  Sex: Male

DRUGS (1)
  1. CAPRELSA [Suspect]
     Active Substance: VANDETANIB
     Indication: THYROID CANCER
     Route: 048

REACTIONS (5)
  - Fatigue [Not Recovered/Not Resolved]
  - Heart rate decreased [Unknown]
  - Electrocardiogram change [Unknown]
  - Diarrhoea [Not Recovered/Not Resolved]
  - Somnolence [Unknown]
